FAERS Safety Report 20608653 (Version 2)
Quarter: 2022Q2

REPORT INFORMATION
  Report Type: Spontaneous
  Country: JP (occurrence: JP)
  Receive Date: 20220317
  Receipt Date: 20220531
  Transmission Date: 20220721
  Serious: Yes (Hospitalization)
  Sender: FDA-Public Use
  Company Number: JP-JNJFOC-20220330909

PATIENT
  Age: 53 Year
  Sex: Female
  Weight: 39.6 kg

DRUGS (6)
  1. TRABECTEDIN [Suspect]
     Active Substance: TRABECTEDIN
     Indication: Soft tissue sarcoma
     Route: 041
     Dates: start: 20211206
  2. TRABECTEDIN [Suspect]
     Active Substance: TRABECTEDIN
     Route: 041
     Dates: start: 20220201
  3. ALOXI [Suspect]
     Active Substance: PALONOSETRON HYDROCHLORIDE
     Indication: Prophylaxis of nausea and vomiting
     Route: 065
     Dates: start: 20211206
  4. DEXAMETHASONE SODIUM PHOSPHATE [Concomitant]
     Active Substance: DEXAMETHASONE SODIUM PHOSPHATE
     Dates: start: 20211206, end: 20211206
  5. GEMCITABINE HYDROCHLORIDE [Concomitant]
     Active Substance: GEMCITABINE HYDROCHLORIDE
  6. DOCETAXEL [Concomitant]
     Active Substance: DOCETAXEL

REACTIONS (4)
  - Rhabdomyolysis [Recovered/Resolved]
  - Hypokalaemia [Recovered/Resolved]
  - Decreased appetite [Unknown]
  - Nausea [Unknown]

NARRATIVE: CASE EVENT DATE: 20220225
